FAERS Safety Report 9222696 (Version 2)
Quarter: 2013Q2

REPORT INFORMATION
  Report Type: Spontaneous
  Country: BR (occurrence: BR)
  Receive Date: 20130410
  Receipt Date: 20130410
  Transmission Date: 20140414
  Serious: Yes (Other)
  Sender: FDA-Public Use
  Company Number: BR-BAYER-2012-123090

PATIENT
  Age: 29 Year
  Sex: Female
  Weight: 48.07 kg

DRUGS (3)
  1. YAZ (24) [Suspect]
     Indication: CONTRACEPTION
     Dosage: UNK
     Route: 048
     Dates: start: 20121117, end: 20121121
  2. YAZ (24) [Suspect]
     Indication: PREMENSTRUAL SYNDROME
  3. CLARITIN [Concomitant]
     Dosage: UNK UNK, TID

REACTIONS (4)
  - Urinary tract infection [Recovered/Resolved]
  - Dysuria [Recovered/Resolved]
  - Dysuria [Recovered/Resolved]
  - Blood urine present [Recovered/Resolved]
